FAERS Safety Report 10089358 (Version 2)
Quarter: 2014Q3

REPORT INFORMATION
  Report Type: Spontaneous
  Country: AU (occurrence: None)
  Receive Date: 20140417
  Receipt Date: 20140722
  Transmission Date: 20150326
  Serious: Yes (Hospitalization)
  Sender: FDA-Public Use
  Company Number: AUR-APL-2014-04532

PATIENT
  Age: 0 Day
  Sex: Female

DRUGS (4)
  1. ARIPIPRAZOLE [Suspect]
     Active Substance: ARIPIPRAZOLE
     Indication: PRODUCT USED FOR UNKNOWN INDICATION
     Route: 064
  2. AURO-QUETIAPINE 200 [Suspect]
     Active Substance: QUETIAPINE
     Indication: PRODUCT USED FOR UNKNOWN INDICATION
     Route: 064
  3. TRAZODONE HYDROCHLORIDE. [Suspect]
     Active Substance: TRAZODONE HYDROCHLORIDE
     Indication: PRODUCT USED FOR UNKNOWN INDICATION
     Route: 064
  4. MUNATREP 200 (LAMOTRIGINE) TABLET, 200MG [Suspect]
     Active Substance: LAMOTRIGINE
     Indication: PRODUCT USED FOR UNKNOWN INDICATION
     Dosage: 200 MG,ONCE A DAY,, TRANSPLACENTAL
     Route: 064

REACTIONS (5)
  - Drug withdrawal syndrome neonatal [None]
  - Myoclonus [None]
  - Maternal drugs affecting foetus [None]
  - Exaggerated startle response [None]
  - Drug withdrawal syndrome [None]

NARRATIVE: CASE EVENT DATE: 20120210
